FAERS Safety Report 17030981 (Version 6)
Quarter: 2021Q1

REPORT INFORMATION
  Report Type: Report from Study
  Country: AU (occurrence: AU)
  Receive Date: 20191114
  Receipt Date: 20210308
  Transmission Date: 20210419
  Serious: Yes (Other)
  Sender: FDA-Public Use
  Company Number: AU-PFIZER INC-2019486853

PATIENT

DRUGS (1)
  1. ERYTHROMYCIN. [Suspect]
     Active Substance: ERYTHROMYCIN
     Indication: ANTIBIOTIC THERAPY
     Dosage: 250 MG, 4X/DAY
     Route: 064

REACTIONS (3)
  - Maternal exposure during pregnancy [Unknown]
  - Pathogen resistance [Unknown]
  - Sepsis neonatal [Unknown]
